FAERS Safety Report 11462449 (Version 1)
Quarter: 2015Q3

REPORT INFORMATION
  Report Type: Spontaneous
  Country: US (occurrence: US)
  Receive Date: 20150831
  Receipt Date: 20150831
  Transmission Date: 20151125
  Serious: No
  Sender: FDA-Public Use
  Company Number: US-ELI_LILLY_AND_COMPANY-US201011001442

PATIENT
  Age: 48 Year
  Sex: Female

DRUGS (2)
  1. CYMBALTA [Suspect]
     Active Substance: DULOXETINE HYDROCHLORIDE
     Indication: NEUROPATHY PERIPHERAL
     Dosage: 60 MG, DAILY (1/D)
     Dates: start: 20100801
  2. CYMBALTA [Suspect]
     Active Substance: DULOXETINE HYDROCHLORIDE
     Dosage: UNK, UNKNOWN
     Dates: end: 20101024

REACTIONS (12)
  - Dry throat [Unknown]
  - Meibomian gland dysfunction [Unknown]
  - Dry mouth [Unknown]
  - Off label use [Recovered/Resolved]
  - Dry skin [Unknown]
  - Alopecia [Unknown]
  - Vision blurred [Unknown]
  - Eye irritation [Unknown]
  - Nail ridging [Unknown]
  - Visual acuity reduced [Unknown]
  - Ocular hyperaemia [Unknown]
  - Dry eye [Unknown]

NARRATIVE: CASE EVENT DATE: 20101001
